FAERS Safety Report 4505588-8 (Version None)
Quarter: 2004Q4

REPORT INFORMATION
  Report Type: 
  Country: None (occurrence: None)
  Receive Date: 20041018
  Receipt Date: 20040722
  Transmission Date: 20050328
  Serious: No
  Sender: FDA-Public Use
  Company Number: 207994

PATIENT
  Sex: Female

DRUGS (1)
  1. XOLAIR [Suspect]
     Indication: ASTHMA
     Dosage: 375 MG Q2W, SUBCUTANEOUS
     Route: 058
     Dates: start: 20040621

REACTIONS (3)
  - INSOMNIA [None]
  - TREMOR [None]
  - WHEEZING [None]
